FAERS Safety Report 17711774 (Version 1)
Quarter: 2020Q2

REPORT INFORMATION
  Report Type: Spontaneous
  Country: US (occurrence: US)
  Receive Date: 20200427
  Receipt Date: 20200427
  Transmission Date: 20200714
  Serious: No
  Sender: FDA-Public Use
  Company Number: US-ASTRAZENECA-2020SE53204

PATIENT
  Sex: Female

DRUGS (2)
  1. SYMBICORT [Suspect]
     Active Substance: BUDESONIDE\FORMOTEROL FUMARATE DIHYDRATE
     Indication: ASTHMA
     Dosage: 80/4.5MCG TWO PUFFS TWO TIMES A DAY
     Route: 055
     Dates: start: 20200410, end: 20200414
  2. PREDINISONE [Concomitant]
     Dosage: 20.0MG UNKNOWN

REACTIONS (7)
  - Cough [Not Recovered/Not Resolved]
  - Wheezing [Not Recovered/Not Resolved]
  - Dyspnoea [Not Recovered/Not Resolved]
  - Malaise [Unknown]
  - Chest discomfort [Not Recovered/Not Resolved]
  - Intentional product misuse [Unknown]
  - Chest pain [Not Recovered/Not Resolved]
